FAERS Safety Report 11909989 (Version 1)
Quarter: 2016Q1

REPORT INFORMATION
  Report Type: Spontaneous
  Country: US (occurrence: None)
  Receive Date: 20160111
  Receipt Date: 20160111
  Transmission Date: 20160526
  Serious: Yes (Other)
  Sender: FDA-Public Use
  Company Number: None

PATIENT
  Age: 72 Year
  Sex: Male
  Weight: 81.19 kg

DRUGS (1)
  1. CIMZIA [Suspect]
     Active Substance: CERTOLIZUMAB PEGOL
     Indication: ANKYLOSING SPONDYLITIS
     Dosage: 400MG  WKS 1,2,4; + Q4WKS  SUBCUTANEOUS
     Route: 058

REACTIONS (6)
  - Erythema [None]
  - Hypersensitivity [None]
  - Pruritus [None]
  - Burning sensation [None]
  - Osteomyelitis [None]
  - Urticaria [None]

NARRATIVE: CASE EVENT DATE: 20160108
